FAERS Safety Report 8252716-7 (Version None)
Quarter: 2012Q2

REPORT INFORMATION
  Report Type: 
  Country: None (occurrence: None)
  Receive Date: 20120402
  Receipt Date: 20110818
  Transmission Date: 20120825
  Serious: No
  Sender: FDA-Public Use
  Company Number: US-ABBOTT-11P-163-0848349-00

PATIENT
  Age: 4 Year
  Sex: Male
  Weight: 21.792 kg

DRUGS (1)
  1. ANDROGEL [Suspect]
     Indication: PRODUCT USED FOR UNKNOWN INDICATION
     Route: 065

REACTIONS (4)
  - ACNE [None]
  - AGGRESSION [None]
  - ACCIDENTAL EXPOSURE [None]
  - MOOD ALTERED [None]
